FAERS Safety Report 17210305 (Version 2)
Quarter: 2020Q1

REPORT INFORMATION
  Report Type: Spontaneous
  Country: US (occurrence: US)
  Receive Date: 20191227
  Receipt Date: 20200330
  Transmission Date: 20200409
  Serious: No
  Sender: FDA-Public Use
  Company Number: US-INDIVIOR US-INDV-122642-2019

PATIENT
  Age: 38 Year
  Sex: Male

DRUGS (3)
  1. SUBLOCADE [Suspect]
     Active Substance: BUPRENORPHINE
     Indication: DRUG DEPENDENCE
     Dosage: 300 MILLIGRAM, QMO
     Route: 065
     Dates: start: 20191031, end: 201911
  2. SUBLOCADE [Suspect]
     Active Substance: BUPRENORPHINE
     Dosage: 300 MILLIGRAM, QMO
     Route: 030
     Dates: start: 20191127
  3. SUBOXONE [Suspect]
     Active Substance: BUPRENORPHINE HYDROCHLORIDE\NALOXONE HYDROCHLORIDE
     Indication: DRUG DEPENDENCE
     Dosage: UNK
     Route: 065
     Dates: end: 2019

REACTIONS (8)
  - Rhinorrhoea [Unknown]
  - Injection site pain [Recovered/Resolved]
  - Chills [Unknown]
  - Restlessness [Unknown]
  - Drug dependence [Not Recovered/Not Resolved]
  - Injection site erythema [Unknown]
  - Fatigue [Unknown]
  - Incorrect route of product administration [Recovered/Resolved]

NARRATIVE: CASE EVENT DATE: 2019
